FAERS Safety Report 7458756-X (Version None)
Quarter: 2011Q2

REPORT INFORMATION
  Report Type: 
  Country: None (occurrence: None)
  Receive Date: 20110504
  Receipt Date: 20110428
  Transmission Date: 20111010
  Serious: Yes (Other)
  Sender: FDA-Public Use
  Company Number: FR-PFIZER INC-2011031920

PATIENT
  Age: 56 Year
  Sex: Female

DRUGS (3)
  1. TAHOR [Suspect]
     Dosage: 10 MG, ALTERNATE DAY
     Dates: end: 20110220
  2. LEVOTHYROX [Concomitant]
     Dosage: 50 UG, UNK
  3. TAHOR [Suspect]
     Indication: HYPERCHOLESTEROLAEMIA
     Dosage: 10 MG, 1X/DAY

REACTIONS (9)
  - DEPRESSION [None]
  - ARTHRALGIA [None]
  - FATIGUE [None]
  - HEADACHE [None]
  - INSOMNIA [None]
  - TINNITUS [None]
  - CONSTIPATION [None]
  - CHEST PAIN [None]
  - HYPOTENSION [None]
